FAERS Safety Report 24541566 (Version 1)
Quarter: 2024Q4

REPORT INFORMATION
  Report Type: Spontaneous
  Country: US (occurrence: US)
  Receive Date: 20241023
  Receipt Date: 20241023
  Transmission Date: 20250115
  Serious: No
  Sender: APELLIS PHARMACEUTICALS
  Company Number: US-APELLIS-APL-2024-004399

PATIENT

DRUGS (3)
  1. SYFOVRE [Suspect]
     Active Substance: PEGCETACOPLAN
     Indication: Dry age-related macular degeneration
     Dosage: UNK UNK, EVERY OTH MONTH, OD
     Dates: start: 202311, end: 202311
  2. SYFOVRE [Suspect]
     Active Substance: PEGCETACOPLAN
     Dosage: UNK UNK, EVERY OTH MONTH, OD
     Dates: start: 202401, end: 202401
  3. SYFOVRE [Suspect]
     Active Substance: PEGCETACOPLAN
     Dosage: UNK UNK, EVERY OTH MONTH, OS
     Dates: start: 202401, end: 202401

REACTIONS (1)
  - Vitreous floaters [Not Recovered/Not Resolved]
